FAERS Safety Report 4617179-9 (Version None)
Quarter: 2005Q1

REPORT INFORMATION
  Report Type: 
  Country: None (occurrence: None)
  Receive Date: 20050323
  Receipt Date: 20050310
  Transmission Date: 20050727
  Serious: Yes (Hospitalization)
  Sender: FDA-Public Use
  Company Number: FI-GLAXOSMITHKLINE-B0375347A

PATIENT
  Age: 70 Year
  Sex: Female

DRUGS (6)
  1. AVANDIA [Suspect]
     Indication: DIABETES MELLITUS
     Dosage: 8MG PER DAY
     Route: 048
     Dates: start: 20041201, end: 20050304
  2. METFOREM [Concomitant]
     Indication: DIABETES MELLITUS
     Dosage: 2250MG PER DAY
     Route: 048
     Dates: start: 20040101, end: 20050304
  3. AMARYL [Concomitant]
     Indication: DIABETES MELLITUS
     Dosage: 4MG PER DAY
     Route: 048
     Dates: start: 20040101
  4. ATROVENT COMP [Concomitant]
     Indication: ASTHMA
     Route: 055
     Dates: start: 20000101
  5. DILZEM [Concomitant]
     Indication: HYPERTENSION
     Dosage: 90MG PER DAY
     Route: 048
     Dates: start: 20000101, end: 20050304
  6. LIPITOR [Concomitant]
     Indication: HYPERLIPIDAEMIA
     Dosage: 10MG PER DAY
     Route: 048
     Dates: start: 20041201

REACTIONS (12)
  - CARDIAC FAILURE [None]
  - DYSPNOEA AT REST [None]
  - DYSPNOEA EXACERBATED [None]
  - FLUID RETENTION [None]
  - JOINT SWELLING [None]
  - MYOCARDIAL INFARCTION [None]
  - OXYGEN SATURATION DECREASED [None]
  - PLEURITIC PAIN [None]
  - PRODUCTIVE COUGH [None]
  - PULMONARY OEDEMA [None]
  - TROPONIN T INCREASED [None]
  - WHEEZING [None]
